FAERS Safety Report 5726301-2 (Version None)
Quarter: 2008Q2

REPORT INFORMATION
  Report Type: 
  Country: None (occurrence: None)
  Receive Date: 20080502
  Receipt Date: 20080409
  Transmission Date: 20081010
  Serious: Yes (Other)
  Sender: FDA-Public Use
  Company Number: US-ASTRAZENECA-2008UW08817

PATIENT

DRUGS (1)
  1. ARIMIDEX [Suspect]

REACTIONS (2)
  - RESORPTION BONE INCREASED [None]
  - TOOTH ABSCESS [None]
